FAERS Safety Report 25742364 (Version 2)
Quarter: 2025Q3

REPORT INFORMATION
  Report Type: Report from Study
  Country: US (occurrence: US)
  Receive Date: 20250829
  Receipt Date: 20250925
  Transmission Date: 20251021
  Serious: Yes (Other)
  Sender: DECIPHERA PHARMACEUTICALS
  Company Number: US-DECIPHERA PHARMACEUTICALS LLC-2025US001064

PATIENT
  Age: 64 Year
  Sex: Female

DRUGS (2)
  1. QINLOCK [Suspect]
     Active Substance: RIPRETINIB
     Indication: Gastrointestinal stromal tumour
     Dosage: 150 MILLIGRAM, BID (3 TABLETS TWICE DAILY)
     Route: 048
     Dates: start: 20250101, end: 2025
  2. QINLOCK [Suspect]
     Active Substance: RIPRETINIB
     Dosage: 150 MILLIGRAM, BID  (3 TABLETS TWICE DAILY)
     Route: 048
     Dates: start: 2025

REACTIONS (9)
  - Malignant neoplasm progression [Unknown]
  - Atrial fibrillation [Unknown]
  - Gingival bleeding [Unknown]
  - Skin atrophy [Unknown]
  - White blood cell count abnormal [Unknown]
  - Arthralgia [Unknown]
  - Asthenia [Unknown]
  - Incorrect dose administered [Unknown]
  - Inappropriate schedule of product administration [Unknown]

NARRATIVE: CASE EVENT DATE: 20250101
